FAERS Safety Report 4421057-8 (Version None)
Quarter: 2004Q3

REPORT INFORMATION
  Report Type: 
  Country: None (occurrence: None)
  Receive Date: 20040809
  Receipt Date: 20040726
  Transmission Date: 20050211
  Serious: Yes (Other)
  Sender: FDA-Public Use
  Company Number: PHBS2004IE10163

PATIENT
  Age: 53 Year
  Sex: Male

DRUGS (2)
  1. DICLOFENAC [Suspect]
     Indication: POST PROCEDURAL PAIN
     Dosage: 100 MG, ONCE/SINGLE
     Route: 054
  2. PREDNISOLONE [Concomitant]

REACTIONS (7)
  - ABDOMINAL PAIN [None]
  - GASTROINTESTINAL MUCOSAL DISORDER [None]
  - HAEMATOCHEZIA [None]
  - MUCOSAL ULCERATION [None]
  - NECROSIS ISCHAEMIC [None]
  - PROCTITIS [None]
  - THROMBOSIS [None]
